FAERS Safety Report 22124273 (Version 1)
Quarter: 2023Q1

REPORT INFORMATION
  Report Type: Spontaneous
  Country: DE (occurrence: None)
  Receive Date: 20230322
  Receipt Date: 20230322
  Transmission Date: 20230418
  Serious: Yes (Other)
  Sender: FDA-Public Use
  Company Number: DE-ROCHE-3314063

PATIENT
  Age: 60 Year
  Sex: Male

DRUGS (14)
  1. RITUXIMAB [Suspect]
     Active Substance: RITUXIMAB
     Indication: Diffuse large B-cell lymphoma
     Dosage: R-CHOP, FIRST LINE
     Route: 065
     Dates: start: 202206, end: 202211
  2. RITUXIMAB [Suspect]
     Active Substance: RITUXIMAB
     Dosage: R-DHAP, 2ND LINE, 2 CYCLES
     Route: 065
     Dates: start: 202212, end: 202302
  3. RITUXIMAB [Suspect]
     Active Substance: RITUXIMAB
     Dosage: R-POLATUZMAB, BENDAMUSTINE, 3RD LINE
     Route: 065
     Dates: start: 20230202, end: 20230314
  4. CYCLOPHOSPHAMIDE [Suspect]
     Active Substance: CYCLOPHOSPHAMIDE
     Indication: Diffuse large B-cell lymphoma
     Dosage: R-CHOP, FIRST LINE
     Route: 065
     Dates: start: 20220601, end: 20221101
  5. DOXORUBICIN [Suspect]
     Active Substance: DOXORUBICIN
     Indication: Diffuse large B-cell lymphoma
     Dosage: R-CHOP, FIRST LINE
     Route: 065
     Dates: start: 20220601, end: 20221101
  6. VINCRISTINE [Suspect]
     Active Substance: VINCRISTINE
     Indication: Diffuse large B-cell lymphoma
     Dosage: R-CHOP, FIRST LINE
     Route: 065
     Dates: start: 20220601, end: 20221101
  7. PREDNISONE [Suspect]
     Active Substance: PREDNISONE
     Indication: Diffuse large B-cell lymphoma
     Dosage: R-CHOP, FIRST LINE
     Route: 065
     Dates: start: 20220601, end: 20221101
  8. DEXAMETHASONE [Suspect]
     Active Substance: DEXAMETHASONE
     Indication: Diffuse large B-cell lymphoma
     Dosage: R-CHOP, FIRST LINE
     Route: 065
     Dates: start: 20221201, end: 20230201
  9. CYTARABINE [Suspect]
     Active Substance: CYTARABINE
     Indication: Diffuse large B-cell lymphoma
     Dosage: R-CHOP, FIRST LINE
     Route: 065
     Dates: start: 20221201, end: 20230201
  10. CISPLATIN [Suspect]
     Active Substance: CISPLATIN
     Indication: Diffuse large B-cell lymphoma
     Dosage: R-CHOP, FIRST LINE
     Route: 065
     Dates: start: 20221201, end: 20230201
  11. BENDAMUSTINE [Suspect]
     Active Substance: BENDAMUSTINE
     Indication: Diffuse large B-cell lymphoma
     Dosage: R-CHOP, FIRST LINE
     Route: 065
     Dates: start: 20230202, end: 20230314
  12. POLATUZUMAB VEDOTIN [Suspect]
     Active Substance: POLATUZUMAB VEDOTIN
     Indication: Diffuse large B-cell lymphoma
     Dosage: R-CHOP, FIRST LINE
     Route: 065
     Dates: start: 20230202, end: 20230314
  13. TAFASITAMAB-CXIX [Suspect]
     Active Substance: TAFASITAMAB-CXIX
     Indication: Diffuse large B-cell lymphoma
     Route: 065
     Dates: start: 20230316
  14. LENALIDOMIDE [Suspect]
     Active Substance: LENALIDOMIDE
     Indication: Diffuse large B-cell lymphoma
     Route: 065
     Dates: start: 20230316

REACTIONS (2)
  - Lymphoma [Not Recovered/Not Resolved]
  - Infection [Recovering/Resolving]

NARRATIVE: CASE EVENT DATE: 20230101
